FAERS Safety Report 10452971 (Version 2)
Quarter: 2014Q3

REPORT INFORMATION
  Report Type: Report from Study
  Country: CA (occurrence: CA)
  Receive Date: 20140915
  Receipt Date: 20140915
  Transmission Date: 20150326
  Serious: Yes (Life-Threatening, Hospitalization, Other)
  Sender: FDA-Public Use
  Company Number: CA-ABBVIE-14K-028-1268237-00

PATIENT
  Sex: Female
  Weight: 65 kg

DRUGS (2)
  1. HUMIRA [Suspect]
     Active Substance: ADALIMUMAB
     Route: 058
     Dates: start: 20120525, end: 20140717
  2. HUMIRA [Suspect]
     Active Substance: ADALIMUMAB
     Indication: CROHN^S DISEASE
     Route: 058
     Dates: start: 20111223, end: 2012

REACTIONS (9)
  - Eosinophilia [Unknown]
  - Memory impairment [Unknown]
  - Unevaluable event [Unknown]
  - Cholelithiasis [Unknown]
  - Dyspnoea [Recovered/Resolved]
  - Alveolitis allergic [Unknown]
  - Rash [Unknown]
  - Gallbladder disorder [Unknown]
  - Rash [Unknown]

NARRATIVE: CASE EVENT DATE: 2012
